FAERS Safety Report 4371241-7 (Version None)
Quarter: 2004Q2

REPORT INFORMATION
  Report Type: 
  Country: None (occurrence: None)
  Receive Date: 20040603
  Receipt Date: 20040517
  Transmission Date: 20050107
  Serious: Yes (Hospitalization)
  Sender: FDA-Public Use
  Company Number: BE-JNJFOC-20040503836

PATIENT
  Age: 17 Year
  Sex: Male

DRUGS (2)
  1. REMICADE [Suspect]
     Indication: CROHN'S DISEASE
     Dosage: 3 MG/KG, INTRAVENOUS
     Route: 042
     Dates: start: 20030714, end: 20040123
  2. IMURAN [Concomitant]

REACTIONS (5)
  - CROHN'S DISEASE [None]
  - DISEASE RECURRENCE [None]
  - FATIGUE [None]
  - HEADACHE [None]
  - TREATMENT NONCOMPLIANCE [None]
